FAERS Safety Report 21963138 (Version 1)
Quarter: 2023Q1

REPORT INFORMATION
  Report Type: Report from Study
  Country: US (occurrence: US)
  Receive Date: 20230207
  Receipt Date: 20230207
  Transmission Date: 20230417
  Serious: No
  Sender: FDA-Public Use
  Company Number: US-AMRYT PHARMACEUTICALS DAC-AEGR005861

PATIENT
  Sex: Male
  Weight: 18.141 kg

DRUGS (10)
  1. MYALEPT [Suspect]
     Active Substance: METRELEPTIN
     Indication: Congenital generalised lipodystrophy
     Dosage: 1.2 MILLIGRAM
  2. MYALEPT [Suspect]
     Active Substance: METRELEPTIN
     Dosage: 1.3 MILLIGRAM
  3. MYALEPT [Suspect]
     Active Substance: METRELEPTIN
     Dosage: 20 UNITS, QD (1MG TOTAL)
     Route: 058
  4. MYALEPT [Suspect]
     Active Substance: METRELEPTIN
     Dosage: 1 MILLIGRAM, QD
     Route: 058
  5. MYALEPT [Suspect]
     Active Substance: METRELEPTIN
     Dosage: 1.5 MILLIGRAM (INJECT 0.3ML OR 30UNITS), QD
     Route: 058
  6. BACTERIOSTATIC WATER [Concomitant]
     Active Substance: WATER
     Indication: Product used for unknown indication
  7. CEROVITE JR [Concomitant]
     Indication: Product used for unknown indication
     Dosage: 18 MG-10MCG
  8. ALBUTEROL SULFATE [Concomitant]
     Active Substance: ALBUTEROL SULFATE
     Indication: Product used for unknown indication
     Dosage: 0.63MG/3 ML
  9. FISH OIL [Concomitant]
     Active Substance: FISH OIL
     Indication: Product used for unknown indication
  10. SINGULAIR [Concomitant]
     Active Substance: MONTELUKAST SODIUM
     Indication: Product used for unknown indication

REACTIONS (4)
  - Laboratory test abnormal [Unknown]
  - Hypersomnia [Unknown]
  - Nail discolouration [Unknown]
  - Skin discolouration [Not Recovered/Not Resolved]
